FAERS Safety Report 5088649-7 (Version None)
Quarter: 2006Q3

REPORT INFORMATION
  Report Type: 
  Country: None (occurrence: None)
  Receive Date: 20060825
  Receipt Date: 20060816
  Transmission Date: 20061208
  Serious: Yes (Death)
  Sender: FDA-Public Use
  Company Number: US-BRISTOL-MYERS SQUIBB COMPANY-13481668

PATIENT
  Age: 13 Year
  Sex: Male

DRUGS (1)
  1. ABILIFY [Suspect]

REACTIONS (1)
  - TEMPERATURE INTOLERANCE [None]
